FAERS Safety Report 5813718-0 (Version None)
Quarter: 2008Q3

REPORT INFORMATION
  Report Type: 
  Country: None (occurrence: None)
  Receive Date: 20080717
  Receipt Date: 20080707
  Transmission Date: 20090109
  Serious: Yes (Hospitalization, Disabling)
  Sender: FDA-Public Use
  Company Number: JP-ABBOTT-07P-087-0371932-00

PATIENT
  Sex: Male

DRUGS (8)
  1. LEUPLIN FOR INJECTION KIT 3.75 MG [Suspect]
     Indication: PROSTATE CANCER
     Route: 058
     Dates: start: 20060608, end: 20070315
  2. ACETYLSALICYLIC ACID SRT [Concomitant]
     Indication: DRUG USE FOR UNKNOWN INDICATION
     Route: 048
  3. AMLODIPINE BESYLATE [Concomitant]
     Indication: DRUG USE FOR UNKNOWN INDICATION
     Route: 048
  4. VALSARTAN [Concomitant]
     Indication: DRUG USE FOR UNKNOWN INDICATION
     Route: 048
  5. CARBAZOCHROME SODIUM SULFONATE [Concomitant]
     Indication: HAEMOSTASIS
     Route: 048
     Dates: start: 20060829, end: 20070302
  6. CEPHARANTHINE [Concomitant]
     Indication: DRUG THERAPY
     Route: 048
     Dates: start: 20061018, end: 20061221
  7. ANCER [Concomitant]
     Indication: DRUG THERAPY
     Route: 058
     Dates: start: 20061020, end: 20061130
  8. RADIOTHERAPY [Concomitant]
     Indication: PROSTATE CANCER
     Dates: start: 20061018, end: 20061205

REACTIONS (6)
  - CELL MARKER INCREASED [None]
  - CHEST DISCOMFORT [None]
  - DECREASED APPETITE [None]
  - DYSPNOEA [None]
  - INTERSTITIAL LUNG DISEASE [None]
  - MALAISE [None]
